FAERS Safety Report 23933314 (Version 2)
Quarter: 2024Q4

REPORT INFORMATION
  Report Type: Spontaneous
  Country: US (occurrence: US)
  Receive Date: 20240603
  Receipt Date: 20241210
  Transmission Date: 20250115
  Serious: No
  Sender: TEVA
  Company Number: US-TEVA-VS-3201267

PATIENT
  Age: 78 Year
  Sex: Female

DRUGS (1)
  1. QVAR REDIHALER [Suspect]
     Active Substance: BECLOMETHASONE DIPROPIONATE
     Indication: Asthma
     Dosage: DOSE FORM: INHALATION AEROSOL
     Route: 055
     Dates: start: 202403

REACTIONS (4)
  - Throat irritation [Unknown]
  - Device delivery system issue [Unknown]
  - Cough [Unknown]
  - Accidental exposure to product [Unknown]

NARRATIVE: CASE EVENT DATE: 20240101
